FAERS Safety Report 8476018-9 (Version None)
Quarter: 2012Q2

REPORT INFORMATION
  Report Type: 
  Country: None (occurrence: None)
  Receive Date: 20120628
  Receipt Date: 20120619
  Transmission Date: 20120825
  Serious: No
  Sender: FDA-Public Use
  Company Number: US-ASTRAZENECA-2010SE41259

PATIENT
  Age: 78 Year
  Sex: Female

DRUGS (5)
  1. CRESTOR [Suspect]
     Route: 048
  2. ARIMIDEX [Suspect]
     Route: 048
  3. ANTIBIOTIC [Suspect]
     Route: 065
  4. BACTRIM [Suspect]
     Route: 065
  5. NEXIUM [Suspect]
     Route: 048

REACTIONS (4)
  - TREMOR [None]
  - FEELING ABNORMAL [None]
  - PHARYNGITIS STREPTOCOCCAL [None]
  - FATIGUE [None]
